FAERS Safety Report 23961386 (Version 1)
Quarter: 2024Q2

REPORT INFORMATION
  Report Type: Spontaneous
  Country: GB (occurrence: GB)
  Receive Date: 20240611
  Receipt Date: 20240611
  Transmission Date: 20240715
  Serious: Yes (Other)
  Sender: FDA-Public Use
  Company Number: None

PATIENT
  Age: 60 Year
  Sex: Male
  Weight: 114 kg

DRUGS (1)
  1. CIPROFLOXACIN [Suspect]
     Active Substance: CIPROFLOXACIN
     Indication: Prostatitis
     Dosage: 500 MG, BID
     Route: 048
     Dates: start: 20240327, end: 20240404

REACTIONS (5)
  - Medication error [Unknown]
  - Confusional state [Not Recovered/Not Resolved]
  - Walking disability [Not Recovered/Not Resolved]
  - Depression [None]
  - Gait disturbance [None]

NARRATIVE: CASE EVENT DATE: 20240404
